FAERS Safety Report 18960142 (Version 1)
Quarter: 2021Q1

REPORT INFORMATION
  Report Type: Spontaneous
  Country: CA (occurrence: CA)
  Receive Date: 20210302
  Receipt Date: 20210302
  Transmission Date: 20210420
  Serious: Yes (Hospitalization)
  Sender: FDA-Public Use
  Company Number: CA-JNJFOC-20210243439

PATIENT
  Age: 63 Year
  Sex: Male

DRUGS (9)
  1. INVOKANA [Suspect]
     Active Substance: CANAGLIFLOZIN
     Indication: TYPE 2 DIABETES MELLITUS
     Route: 048
  2. ATORVASTATIN [Concomitant]
     Active Substance: ATORVASTATIN
  3. KETOROLAC [Concomitant]
     Active Substance: KETOROLAC TROMETHAMINE
  4. AMITRIPTYLINE [Concomitant]
     Active Substance: AMITRIPTYLINE
  5. AERIUS (DESLORATADINE) [Concomitant]
     Active Substance: DESLORATADINE
  6. GLICLAZIDE [Concomitant]
     Active Substance: GLICLAZIDE
  7. RIZATRIPTAN. [Concomitant]
     Active Substance: RIZATRIPTAN
  8. PERINDOPRIL [Concomitant]
     Active Substance: PERINDOPRIL
  9. RABEPRAZOLE [Concomitant]
     Active Substance: RABEPRAZOLE

REACTIONS (2)
  - Pancreatitis [Recovered/Resolved]
  - Laboratory test abnormal [Recovered/Resolved]
